FAERS Safety Report 10265646 (Version 1)
Quarter: 2014Q2

REPORT INFORMATION
  Report Type: Spontaneous
  Country: PL (occurrence: PL)
  Receive Date: 20140627
  Receipt Date: 20140627
  Transmission Date: 20141212
  Serious: Yes (Other)
  Sender: FDA-Public Use
  Company Number: PHHY2014PL076088

PATIENT
  Age: 52 Year
  Sex: Male
  Weight: 65 kg

DRUGS (5)
  1. OXALIPLATIN [Suspect]
     Indication: PANCREATIC CARCINOMA
     Dosage: 144 MG, UNK
     Route: 042
     Dates: start: 20140305, end: 20140307
  2. IRINOTECAN [Suspect]
     Indication: PANCREATIC CARCINOMA
     Dosage: 306 MG, UNK
     Route: 042
     Dates: start: 20140305, end: 20140307
  3. 5-FLUOROURACIL [Suspect]
     Indication: PANCREATIC CARCINOMA
     Dosage: 680 OT, UNK
     Route: 042
     Dates: start: 20140305, end: 20140307
  4. 5-FLUOROURACIL [Suspect]
     Dosage: 4080 OT, UNK
     Route: 042
     Dates: start: 20140305, end: 20140307
  5. LEUCOVORIN CALCIUM [Suspect]
     Indication: PANCREATIC CARCINOMA
     Dosage: UNK UKN, UNK
     Route: 042
     Dates: start: 20140305, end: 20140307

REACTIONS (2)
  - Hepatotoxicity [Recovered/Resolved]
  - Alanine aminotransferase increased [Recovered/Resolved]
